FAERS Safety Report 24751338 (Version 2)
Quarter: 2025Q1

REPORT INFORMATION
  Report Type: Spontaneous
  Country: US (occurrence: US)
  Receive Date: 20241219
  Receipt Date: 20250318
  Transmission Date: 20250408
  Serious: Yes (Hospitalization)
  Sender: CSL BEHRING
  Company Number: US-BEH-2024187561

PATIENT
  Age: 63 Year
  Sex: Female

DRUGS (5)
  1. CORIFACT [Suspect]
     Active Substance: FACTOR XIII CONCENTRATE (HUMAN)
     Indication: Antithrombin III deficiency
     Route: 042
     Dates: start: 202304
  2. GAMUNEX [Concomitant]
     Active Substance: HUMAN IMMUNOGLOBULIN G
  3. GAMUNEX [Concomitant]
     Active Substance: HUMAN IMMUNOGLOBULIN G
  4. SOLU-CORTEF [Concomitant]
     Active Substance: HYDROCORTISONE SODIUM SUCCINATE
  5. AMICAR [Concomitant]
     Active Substance: AMINOCAPROIC ACID
     Indication: Premedication
     Dates: start: 20241126

REACTIONS (4)
  - Weight decreased [Unknown]
  - Steroid therapy [Unknown]
  - Contusion [Recovered/Resolved]
  - Insurance issue [Unknown]

NARRATIVE: CASE EVENT DATE: 20241122
